FAERS Safety Report 9922608 (Version 2)
Quarter: 2014Q1

REPORT INFORMATION
  Report Type: Report from Study
  Country: JP (occurrence: JP)
  Receive Date: 20140225
  Receipt Date: 20140317
  Transmission Date: 20141002
  Serious: No
  Sender: FDA-Public Use
  Company Number: JP-TAKEDA-2014TJP001770

PATIENT
  Age: 71 Year
  Sex: Male
  Weight: 86.2 kg

DRUGS (6)
  1. PIOGLITAZONE, GLIMEPIRIDE [Suspect]
     Indication: TYPE 2 DIABETES MELLITUS
     Dosage: 1 DF, QD
     Route: 048
     Dates: start: 20121130
  2. LIPOVAS                            /00848101/ [Concomitant]
     Dosage: UNK
     Route: 048
  3. EXFORGE [Concomitant]
     Dosage: UNK
     Route: 048
  4. CARDENALIN [Concomitant]
     Dosage: UNK
     Route: 048
  5. SELARA [Concomitant]
     Dosage: UNK
     Route: 048
  6. RINDERON-VG [Concomitant]
     Dosage: UNK
     Route: 062

REACTIONS (1)
  - Bronchitis [Recovered/Resolved]
